FAERS Safety Report 21860500 (Version 1)
Quarter: 2023Q1

REPORT INFORMATION
  Report Type: Spontaneous
  Country: US (occurrence: None)
  Receive Date: 20230113
  Receipt Date: 20230113
  Transmission Date: 20230417
  Serious: Yes (Life-Threatening, Hospitalization)
  Sender: FDA-Public Use
  Company Number: None

PATIENT
  Age: 73 Year
  Sex: Female
  Weight: 75 kg

DRUGS (2)
  1. CEFTRIAXONE [Suspect]
     Active Substance: CEFTRIAXONE
     Indication: Urinary tract infection
     Dosage: OTHER FREQUENCY : ONCE;?
     Route: 040
     Dates: start: 20230111, end: 20230111
  2. none started prior to ceftriaxone dose [Concomitant]

REACTIONS (6)
  - Loss of consciousness [None]
  - Erythema [None]
  - Respiratory arrest [None]
  - Pulse absent [None]
  - Urinary incontinence [None]
  - Infusion related reaction [None]

NARRATIVE: CASE EVENT DATE: 20230111
